FAERS Safety Report 9006922 (Version 4)
Quarter: 2013Q4

REPORT INFORMATION
  Report Type: Spontaneous
  Country: US (occurrence: US)
  Receive Date: 20130110
  Receipt Date: 20131121
  Transmission Date: 20140711
  Serious: Yes (Hospitalization)
  Sender: FDA-Public Use
  Company Number: US-INCYTE CORPORATION-2013IN000022

PATIENT
  Age: 90 Year
  Sex: Female

DRUGS (7)
  1. JAKAFI [Suspect]
     Indication: MYELOFIBROSIS
     Dosage: 20 MG, BID
     Route: 048
     Dates: start: 20121122
  2. JAKAFI [Suspect]
     Dosage: 10 MG, BID
  3. MELPHALAN [Concomitant]
  4. ANAGRELIDE [Concomitant]
  5. ARANESP [Concomitant]
  6. HYDREA [Concomitant]
  7. STEROIDS [Concomitant]

REACTIONS (7)
  - Abdominal pain upper [Unknown]
  - Gingival bleeding [Not Recovered/Not Resolved]
  - Epistaxis [Not Recovered/Not Resolved]
  - Fatigue [Unknown]
  - Neuropathy peripheral [Unknown]
  - Dysgeusia [Unknown]
  - Anaemia [Unknown]
